FAERS Safety Report 19443884 (Version 2)
Quarter: 2021Q3

REPORT INFORMATION
  Report Type: Spontaneous
  Country: US (occurrence: US)
  Receive Date: 20210621
  Receipt Date: 20210709
  Transmission Date: 20211014
  Serious: Yes (Other)
  Sender: FDA-Public Use
  Company Number: US-PFIZER INC-2021691701

PATIENT
  Age: 34 Year
  Sex: Female

DRUGS (8)
  1. CISPLATIN. [Suspect]
     Active Substance: CISPLATIN
     Indication: GESTATIONAL TROPHOBLASTIC TUMOUR
     Dosage: 675 MG/M2, CYCLIC (FREQ:9 {CYCLICAL};DAY 1)
     Route: 042
  2. DACTINOMYCIN [Suspect]
     Active Substance: DACTINOMYCIN
     Indication: GESTATIONAL TROPHOBLASTIC TUMOUR
     Dosage: 4.5 MG, CYCLIC (FREQ:9 {CYCLICAL};DAY 8)
  3. PEMBROLIZUMAB. [Concomitant]
     Active Substance: PEMBROLIZUMAB
     Indication: GESTATIONAL TROPHOBLASTIC TUMOUR
     Dosage: MAINTENANCE
  4. APIXABAN [Concomitant]
     Active Substance: APIXABAN
     Indication: ANTICOAGULANT THERAPY
     Dosage: UNK
  5. PEMBROLIZUMAB. [Concomitant]
     Active Substance: PEMBROLIZUMAB
     Dosage: 600 MG, CYCLIC (FREQ:3 {CYCLICAL};EVERY THREE WEEKS)
  6. METHOTREXATE SODIUM. [Suspect]
     Active Substance: METHOTREXATE SODIUM
     Indication: GESTATIONAL TROPHOBLASTIC TUMOUR
     Dosage: 2700 MG/M2, CYCLIC (FREQ:9 {CYCLICAL};DAY 9)
  7. ETOPOSIDE. [Suspect]
     Active Substance: ETOPOSIDE
     Indication: GESTATIONAL TROPHOBLASTIC TUMOUR
     Dosage: 1350 MG/M2, CYCLIC (FREQ:9 {CYCLICAL};DAY 1)
     Route: 042
  8. ETOPOSIDE. [Suspect]
     Active Substance: ETOPOSIDE
     Dosage: 900 MG/M2, CYCLIC (FREQ:9 {CYCLICAL};DAY 8)
     Route: 042

REACTIONS (3)
  - Ototoxicity [Recovered/Resolved]
  - Thrombocytopenia [Recovered/Resolved]
  - Tinnitus [Recovered/Resolved]
